FAERS Safety Report 24125506 (Version 1)
Quarter: 2024Q3

REPORT INFORMATION
  Report Type: Spontaneous
  Country: AU (occurrence: AU)
  Receive Date: 20240723
  Receipt Date: 20240723
  Transmission Date: 20241016
  Serious: Yes (Other)
  Sender: ACCORD
  Company Number: None

PATIENT
  Age: 59 Year
  Sex: Female

DRUGS (5)
  1. PACLITAXEL [Suspect]
     Active Substance: PACLITAXEL
     Indication: Product used for unknown indication
  2. PERTUZUMAB [Suspect]
     Active Substance: PERTUZUMAB
  3. TRASTUZUMAB [Suspect]
     Active Substance: TRASTUZUMAB
  4. CAPECITABINE [Concomitant]
     Active Substance: CAPECITABINE
  5. TUCATINIB [Concomitant]
     Active Substance: TUCATINIB

REACTIONS (3)
  - Hepatitis [Unknown]
  - Pneumonitis [Unknown]
  - Neoplasm progression [Unknown]
